FAERS Safety Report 9669255 (Version 1)
Quarter: 2013Q4

REPORT INFORMATION
  Report Type: Spontaneous
  Country: US (occurrence: None)
  Receive Date: 20131104
  Receipt Date: 20131104
  Transmission Date: 20140711
  Serious: Yes (Other)
  Sender: FDA-Public Use
  Company Number: None

PATIENT
  Age: 70 Year
  Sex: Male

DRUGS (1)
  1. ALBUTEROL SULFATE [Suspect]
     Indication: BRONCHITIS
     Dosage: VIAL
     Route: 055
     Dates: start: 20130928, end: 20130930

REACTIONS (2)
  - Bronchial irritation [None]
  - Product quality issue [None]
